FAERS Safety Report 5253875-0 (Version None)
Quarter: 2007Q1

REPORT INFORMATION
  Report Type: 
  Country: None (occurrence: None)
  Receive Date: 20070227
  Receipt Date: 20070216
  Transmission Date: 20070707
  Serious: Yes (Other)
  Sender: FDA-Public Use
  Company Number: 236343

PATIENT
  Sex: Male
  Weight: 145 kg

DRUGS (1)
  1. XOLAIR [Suspect]
     Indication: ASTHMA
     Dosage: 450 MG, Q2W, SUBCUTANEOUS
     Route: 058
     Dates: start: 20040101, end: 20070118

REACTIONS (4)
  - CARDIAC FAILURE CONGESTIVE [None]
  - CARDIOMYOPATHY [None]
  - NEPHROPATHY [None]
  - VIRAL INFECTION [None]
